FAERS Safety Report 11659535 (Version 1)
Quarter: 2015Q4

REPORT INFORMATION
  Report Type: Spontaneous
  Country: US (occurrence: US)
  Receive Date: 20151026
  Receipt Date: 20151026
  Transmission Date: 20160304
  Serious: No
  Sender: FDA-Public Use
  Company Number: US-BAYER-2015-451224

PATIENT
  Age: 62 Year
  Sex: Male

DRUGS (2)
  1. ULTRAVIST [Suspect]
     Active Substance: IOPROMIDE
     Indication: SCAN WITH CONTRAST
     Dosage: 65 ML, ONCE
     Route: 042
     Dates: start: 20151022, end: 20151022
  2. ULTRAVIST [Suspect]
     Active Substance: IOPROMIDE
     Indication: DYSPNOEA

REACTIONS (2)
  - Urticaria [Recovered/Resolved]
  - Ear pruritus [Recovered/Resolved]

NARRATIVE: CASE EVENT DATE: 20151022
